FAERS Safety Report 6883161-4 (Version None)
Quarter: 2010Q3

REPORT INFORMATION
  Report Type: 
  Country: None (occurrence: None)
  Receive Date: 20100727
  Receipt Date: 20070615
  Transmission Date: 20110219
  Serious: Yes (Other)
  Sender: FDA-Public Use
  Company Number: US-PFIZER INC-2007036475

PATIENT
  Sex: Female
  Weight: 109.3 kg

DRUGS (1)
  1. CELEBREX [Suspect]
     Indication: PAIN
     Dosage: DAILY AS NEEDED
     Route: 048
     Dates: start: 20070502

REACTIONS (2)
  - SWELLING [None]
  - URTICARIA [None]
